FAERS Safety Report 6764510-4 (Version None)
Quarter: 2010Q2

REPORT INFORMATION
  Report Type: 
  Country: None (occurrence: None)
  Receive Date: 20100610
  Receipt Date: 20100526
  Transmission Date: 20101027
  Serious: Yes (Other)
  Sender: FDA-Public Use
  Company Number: PHHY2010CA31802

PATIENT
  Sex: Female

DRUGS (2)
  1. ZOLEDRONIC ACID [Suspect]
     Dosage: 4 MG
  2. ZOLEDRONIC ACID [Suspect]
     Dosage: UNK

REACTIONS (3)
  - HUNGRY BONE SYNDROME [None]
  - HYPOPHOSPHATAEMIA [None]
  - SURGERY [None]
